FAERS Safety Report 9778958 (Version 1)
Quarter: 2013Q4

REPORT INFORMATION
  Report Type: Spontaneous
  Country: US (occurrence: US)
  Receive Date: 20131223
  Receipt Date: 20131223
  Transmission Date: 20140711
  Serious: No
  Sender: FDA-Public Use
  Company Number: US-TEVA-450988USA

PATIENT
  Sex: Female
  Weight: 52.21 kg

DRUGS (9)
  1. NUVIGIL [Suspect]
     Indication: CIRCADIAN RHYTHM SLEEP DISORDER
     Dosage: 250 MILLIGRAM DAILY;
     Dates: start: 2011
  2. SYNTHROID [Concomitant]
     Indication: THYROID DISORDER
  3. PLAQUENIL [Concomitant]
     Indication: SYSTEMIC LUPUS ERYTHEMATOSUS
  4. PRISTIQ [Concomitant]
     Indication: AFFECTIVE DISORDER
  5. XANAX [Concomitant]
     Indication: NERVOUSNESS
  6. EVISTA [Concomitant]
     Indication: BONE DISORDER
  7. ZALEPLON [Concomitant]
     Indication: SLEEP DISORDER
  8. MORPHINE [Concomitant]
     Indication: PAIN
     Dosage: 120 MILLIGRAM DAILY;
  9. LORTAB [Concomitant]
     Indication: PAIN

REACTIONS (1)
  - Drug effect decreased [Not Recovered/Not Resolved]
